FAERS Safety Report 5519373-1 (Version None)
Quarter: 2007Q4

REPORT INFORMATION
  Report Type: 
  Country: None (occurrence: None)
  Receive Date: 20071116
  Receipt Date: 20071112
  Transmission Date: 20080405
  Serious: Yes (Hospitalization)
  Sender: FDA-Public Use
  Company Number: US-BRISTOL-MYERS SQUIBB COMPANY-13979109

PATIENT
  Age: 38 Year
  Sex: Male
  Weight: 64 kg

DRUGS (4)
  1. CISPLATIN [Suspect]
     Indication: SQUAMOUS CELL CARCINOMA
     Route: 042
     Dates: start: 20071023, end: 20071023
  2. RADIATION THERAPY [Suspect]
     Dosage: 1DF= 56GY;NO.OF FRACTIONS=28;
     Dates: end: 20071030
  3. OXYCONTIN [Concomitant]
  4. ORAJEL [Concomitant]

REACTIONS (3)
  - DEHYDRATION [None]
  - RENAL FAILURE [None]
  - WEIGHT DECREASED [None]
